FAERS Safety Report 7581543-9 (Version None)
Quarter: 2011Q2

REPORT INFORMATION
  Report Type: 
  Country: None (occurrence: None)
  Receive Date: 20110629
  Receipt Date: 20110623
  Transmission Date: 20111010
  Serious: Yes (Death, Hospitalization)
  Sender: FDA-Public Use
  Company Number: PHHY2010JP50228

PATIENT
  Age: 89 Year
  Sex: Female
  Weight: 37 kg

DRUGS (11)
  1. EXJADE [Suspect]
     Indication: APLASTIC ANAEMIA
     Dosage: 625 MG, DAILY
     Route: 048
     Dates: start: 20080908, end: 20081014
  2. VITAMIN K TAB [Concomitant]
  3. EXJADE [Suspect]
     Indication: IRON OVERLOAD
  4. ACTOS [Concomitant]
     Indication: TYPE 2 DIABETES MELLITUS
     Dosage: 15 MG, UNK
     Route: 048
  5. BASEN [Concomitant]
     Indication: TYPE 2 DIABETES MELLITUS
     Dosage: 0.6 MG, UNK
     Route: 048
  6. SULFAMETHOXAZOLE [Concomitant]
     Indication: PROPHYLAXIS
     Dosage: 1 DF, UNK
     Route: 048
  7. PRIMOBOLAN-DEPOT INJ [Concomitant]
     Indication: APLASTIC ANAEMIA
     Dosage: 15 MG, UNK
     Route: 048
  8. BLOOD TRANSFUSION, AUXILIARY PRODUCTS [Concomitant]
     Dates: start: 20050601
  9. DESFERAL [Concomitant]
     Indication: IRON OVERLOAD
     Dosage: 500 MG, UNK
     Route: 030
     Dates: start: 20051228, end: 20080908
  10. AMARYL [Concomitant]
     Indication: TYPE 2 DIABETES MELLITUS
     Dosage: 1 MG, UNK
     Route: 048
  11. GLAKAY [Concomitant]
     Dosage: 45 MG, UNK
     Route: 048

REACTIONS (6)
  - SEPSIS [None]
  - PYREXIA [None]
  - HYPOGLYCAEMIA [None]
  - CELLULITIS [None]
  - CHILLS [None]
  - TREMOR [None]
